FAERS Safety Report 12183839 (Version 1)
Quarter: 2016Q1

REPORT INFORMATION
  Report Type: Spontaneous
  Country: US (occurrence: US)
  Receive Date: 20160316
  Receipt Date: 20160316
  Transmission Date: 20160526
  Serious: No
  Sender: FDA-Public Use
  Company Number: US-PFIZER INC-2016134556

PATIENT
  Sex: Male

DRUGS (1)
  1. SERTRALINE HCL [Suspect]
     Active Substance: SERTRALINE HYDROCHLORIDE
     Indication: ANTIDEPRESSANT THERAPY
     Dosage: 100 MG, UNK

REACTIONS (5)
  - Drug ineffective [Unknown]
  - Anxiety [Unknown]
  - Heart rate increased [Unknown]
  - Depression [Unknown]
  - Weight increased [Unknown]
